FAERS Safety Report 19218270 (Version 2)
Quarter: 2021Q2

REPORT INFORMATION
  Report Type: Report from Study
  Country: KR (occurrence: KR)
  Receive Date: 20210505
  Receipt Date: 20210524
  Transmission Date: 20210717
  Serious: Yes (Hospitalization)
  Sender: FDA-Public Use
  Company Number: KR-ROCHE-2802650

PATIENT
  Age: 61 Year
  Sex: Male
  Weight: 64.1 kg

DRUGS (17)
  1. ATORVASTATIN [Concomitant]
     Active Substance: ATORVASTATIN
     Indication: HYPERLIPIDAEMIA
     Route: 048
     Dates: start: 2015
  2. CELECOXIB. [Concomitant]
     Active Substance: CELECOXIB
     Indication: ARTHRITIS
     Route: 048
     Dates: start: 20210218, end: 20210322
  3. MEGESTROL ACETATE. [Concomitant]
     Active Substance: MEGESTROL ACETATE
     Route: 048
     Dates: start: 20210310, end: 20210310
  4. ATEZOLIZUMAB. [Suspect]
     Active Substance: ATEZOLIZUMAB
     Indication: NON-SMALL CELL LUNG CANCER
     Dosage: ON 10/MAR/2021, MOST RECENT DOSE OF ATEZOLIZUMAB PRIOR TO AE, 1200 MG
     Route: 042
     Dates: start: 20201104
  5. TELMISARTAN. [Concomitant]
     Active Substance: TELMISARTAN
     Indication: HYPERTENSION
     Route: 048
     Dates: start: 2015
  6. LEVOCETIRIZINE HYDROCHLORIDE [Concomitant]
     Active Substance: LEVOCETIRIZINE HYDROCHLORIDE
     Indication: PRURITUS
     Route: 048
     Dates: start: 20210106
  7. DESOXYMETHASONE [Concomitant]
     Active Substance: DESOXIMETASONE
     Indication: TOXIC ERYTHEMA OF CHEMOTHERAPY
     Route: 061
     Dates: start: 20210311
  8. CELECOXIB. [Concomitant]
     Active Substance: CELECOXIB
     Route: 048
     Dates: start: 20210420, end: 20210511
  9. UREA. [Concomitant]
     Active Substance: UREA
     Indication: TOXIC ERYTHEMA OF CHEMOTHERAPY
     Route: 061
     Dates: start: 20210311
  10. SODIUM CHLORIDE. [Concomitant]
     Active Substance: SODIUM CHLORIDE
     Indication: HYPOTENSION
     Route: 042
     Dates: start: 20210309, end: 20210309
  11. MUPIROCIN. [Concomitant]
     Active Substance: MUPIROCIN
     Indication: TOXIC ERYTHEMA OF CHEMOTHERAPY
     Route: 061
     Dates: start: 20210311
  12. ACETYLCYSTEINE. [Concomitant]
     Active Substance: ACETYLCYSTEINE
     Route: 042
     Dates: start: 20210420, end: 20210420
  13. HYDROCORTISONE. [Concomitant]
     Active Substance: HYDROCORTISONE
     Indication: RASH
     Route: 061
     Dates: start: 20210331, end: 20210405
  14. TIRAGOLUMAB. [Suspect]
     Active Substance: TIRAGOLUMAB
     Indication: NON-SMALL CELL LUNG CANCER
     Dosage: ON 10/MAR/2021, MOST RECENT DOSE OF BLINDED MTIG 7192A PRIOR TO AE
     Route: 042
     Dates: start: 20201104
  15. BEPOTASTINE BESILATE [Concomitant]
     Active Substance: BEPOTASTINE BESYLATE
     Indication: PRURITUS
     Route: 048
     Dates: start: 20201216
  16. TRESTAN [Concomitant]
     Route: 048
     Dates: start: 20210312, end: 20210319
  17. ASPIRIN. [Concomitant]
     Active Substance: ASPIRIN
     Route: 048
     Dates: start: 2015

REACTIONS (1)
  - Adrenal insufficiency [Recovering/Resolving]

NARRATIVE: CASE EVENT DATE: 20210310
